FAERS Safety Report 4388526-0 (Version None)
Quarter: 2004Q2

REPORT INFORMATION
  Report Type: 
  Country: None (occurrence: None)
  Receive Date: 20040625
  Receipt Date: 20040615
  Transmission Date: 20050107
  Serious: Yes (Hospitalization)
  Sender: FDA-Public Use
  Company Number: JP-JNJFOC-20040502199

PATIENT
  Age: 74 Year
  Sex: Male
  Weight: 59.8 kg

DRUGS (9)
  1. LEVOFLOXACIN [Suspect]
     Indication: UPPER RESPIRATORY TRACT INFLAMMATION
     Dosage: 300 MG, 1 IN 1 D, ORAL
     Route: 048
     Dates: start: 20040428, end: 20040429
  2. PL (OTHER COLD COMBINATION PREPARATIONS) [Suspect]
     Indication: UPPER RESPIRATORY TRACT INFLAMMATION
     Dosage: 3 G, ORAL
     Route: 048
     Dates: start: 20040428, end: 20040429
  3. MUCOSTA (REBAMIPIDE) [Concomitant]
  4. DASEN (SERRAPETASE) [Concomitant]
  5. URSO [Concomitant]
  6. BERIZYM (BERIZYM) [Concomitant]
  7. SUNRYTHM (PILSICAINIDE HYDROCHLORIDE) [Concomitant]
  8. PROTECADIN (PROTECTION) [Concomitant]
  9. FLUOROURACIL [Concomitant]

REACTIONS (2)
  - DIFFICULTY IN WALKING [None]
  - RHABDOMYOLYSIS [None]
